FAERS Safety Report 11680518 (Version 4)
Quarter: 2016Q1

REPORT INFORMATION
  Report Type: Spontaneous
  Country: PK (occurrence: PK)
  Receive Date: 20151029
  Receipt Date: 20160315
  Transmission Date: 20160525
  Serious: Yes (Other)
  Sender: FDA-Public Use
  Company Number: PK-ROCHE-1651245

PATIENT
  Age: 58 Year
  Sex: Male
  Weight: 58 kg

DRUGS (6)
  1. SOVALDI [Suspect]
     Active Substance: SOFOSBUVIR
     Indication: HEPATITIS C
     Route: 048
     Dates: start: 20140904, end: 201411
  2. PEG-INTERFERON ALFA 2A [Suspect]
     Active Substance: PEGINTERFERON ALFA-2A
     Indication: HEPATITIS C
     Dosage: FOR 18 WEEKS
     Route: 065
  3. XOLOX (PAKISTAN) [Suspect]
     Active Substance: RIBAVIRIN
     Indication: HEPATITIS C
     Route: 048
     Dates: start: 20140904, end: 201502
  4. PEG-INTERFERON ALFA 2A [Suspect]
     Active Substance: PEGINTERFERON ALFA-2A
     Route: 065
     Dates: start: 20140904, end: 201502
  5. SOVALDI [Suspect]
     Active Substance: SOFOSBUVIR
     Route: 048
     Dates: start: 2015, end: 20150920
  6. XOLOX (PAKISTAN) [Suspect]
     Active Substance: RIBAVIRIN
     Route: 048
     Dates: start: 2015, end: 20150920

REACTIONS (7)
  - Vomiting [Unknown]
  - Fatigue [Unknown]
  - Off label use [Unknown]
  - Decreased appetite [Unknown]
  - Drug ineffective [Unknown]
  - Hepatitis C [Unknown]
  - Psychotic disorder [Unknown]

NARRATIVE: CASE EVENT DATE: 20150219
